FAERS Safety Report 8294176-6 (Version None)
Quarter: 2012Q2

REPORT INFORMATION
  Report Type: 
  Country: None (occurrence: None)
  Receive Date: 20120418
  Receipt Date: 20120413
  Transmission Date: 20120825
  Serious: Yes (Other)
  Sender: FDA-Public Use
  Company Number: PHHY2012MX032013

PATIENT
  Sex: Female

DRUGS (3)
  1. TRILEPTAL [Suspect]
     Dosage: 1200 MG,
     Dates: start: 20120403
  2. TRILEPTAL [Suspect]
     Indication: SYNCOPE
     Dosage: 1 DF, DAILY
     Dates: start: 20120306
  3. TRILEPTAL [Suspect]
     Dosage: 600 MG,
     Dates: start: 20120401, end: 20120401

REACTIONS (3)
  - SYNCOPE [None]
  - EYE MOVEMENT DISORDER [None]
  - CARDIOVASCULAR DISORDER [None]
